FAERS Safety Report 6443889-7 (Version None)
Quarter: 2009Q4

REPORT INFORMATION
  Report Type: 
  Country: None (occurrence: None)
  Receive Date: 20091113
  Receipt Date: 20091109
  Transmission Date: 20100525
  Serious: Yes (Death)
  Sender: FDA-Public Use
  Company Number: 2009011794

PATIENT
  Age: 59 Year
  Sex: Male

DRUGS (4)
  1. FENTANYL [Suspect]
     Indication: CANCER PAIN
     Dosage: (800 MCG, LESS THAN OR EQUAL TO 16 TABLETS DAILY), BU
     Route: 002
     Dates: start: 20090827
  2. DURAGESIC-100 [Concomitant]
  3. NOVALGIN (METAMIZOLE SODIUM) [Concomitant]
  4. METOCLOPRAMIDE HCL [Concomitant]

REACTIONS (1)
  - INAPPROPRIATE SCHEDULE OF DRUG ADMINISTRATION [None]
